FAERS Safety Report 5339775-6 (Version None)
Quarter: 2007Q2

REPORT INFORMATION
  Report Type: 
  Country: None (occurrence: None)
  Receive Date: 20070525
  Receipt Date: 20070510
  Transmission Date: 20071010
  Serious: Yes (Hospitalization)
  Sender: FDA-Public Use
  Company Number: 2007MP000227

PATIENT
  Age: 80 Year

DRUGS (1)
  1. DACOGEN [Suspect]

REACTIONS (2)
  - ALTERED STATE OF CONSCIOUSNESS [None]
  - OEDEMA [None]
